FAERS Safety Report 6458880-4 (Version None)
Quarter: 2009Q4

REPORT INFORMATION
  Report Type: 
  Country: None (occurrence: None)
  Receive Date: 20091127
  Receipt Date: 20091106
  Transmission Date: 20100525
  Serious: Yes (Other)
  Sender: FDA-Public Use
  Company Number: US-BAYER-200938715NA

PATIENT
  Sex: Female

DRUGS (1)
  1. YASMIN [Suspect]
     Indication: POLYCYSTIC OVARIES
     Route: 048
     Dates: start: 20070801

REACTIONS (6)
  - CHOLECYSTECTOMY [None]
  - DIARRHOEA [None]
  - HEPATIC ENZYME ABNORMAL [None]
  - HEPATOMEGALY [None]
  - NAUSEA [None]
  - PAIN [None]
